FAERS Safety Report 9405065 (Version 1)
Quarter: 2013Q3

REPORT INFORMATION
  Report Type: Spontaneous
  Country: US (occurrence: US)
  Receive Date: 20130717
  Receipt Date: 20130717
  Transmission Date: 20140515
  Serious: Yes (Other)
  Sender: FDA-Public Use
  Company Number: US-BRISTOL-MYERS SQUIBB COMPANY-18876334

PATIENT
  Age: 51 Year
  Sex: Male
  Weight: 112.47 kg

DRUGS (4)
  1. YERVOY [Suspect]
     Indication: METASTATIC MALIGNANT MELANOMA
     Dosage: LAST DOSE WAS 03MAY2013
     Dates: start: 20130322
  2. ZOFRAN [Concomitant]
  3. COMPAZINE [Concomitant]
  4. TRAMADOL [Concomitant]

REACTIONS (5)
  - Neuropathy peripheral [Unknown]
  - Diarrhoea [Unknown]
  - Headache [Recovered/Resolved]
  - Fatigue [Unknown]
  - Irritability [Unknown]
